FAERS Safety Report 9861666 (Version 1)
Quarter: 2014Q1

REPORT INFORMATION
  Report Type: Spontaneous
  Country: CA (occurrence: CA)
  Receive Date: 20140203
  Receipt Date: 20140203
  Transmission Date: 20141002
  Serious: Yes (Other)
  Sender: FDA-Public Use
  Company Number: CA-ROCHE-1342543

PATIENT
  Age: 42 Year
  Sex: Female
  Weight: 60.06 kg

DRUGS (4)
  1. XOLAIR [Suspect]
     Indication: PRODUCT USED FOR UNKNOWN INDICATION
     Route: 058
  2. KINERET [Concomitant]
     Route: 065
  3. EPIPEN [Concomitant]
     Route: 065
  4. PREDNISONE [Concomitant]

REACTIONS (5)
  - Pharyngeal oedema [Recovered/Resolved]
  - Stridor [Recovered/Resolved]
  - Tachycardia [Recovered/Resolved]
  - Nausea [Recovered/Resolved]
  - Flushing [Recovered/Resolved]
